FAERS Safety Report 17659540 (Version 3)
Quarter: 2020Q2

REPORT INFORMATION
  Report Type: Spontaneous
  Country: ES (occurrence: ES)
  Receive Date: 20200413
  Receipt Date: 20200422
  Transmission Date: 20200713
  Serious: Yes (Hospitalization, Other)
  Sender: FDA-Public Use
  Company Number: ES-GILEAD-2020-0458465

PATIENT
  Age: 47 Year
  Sex: Male

DRUGS (8)
  1. EPCLUSA [Suspect]
     Active Substance: SOFOSBUVIR\VELPATASVIR
     Indication: PRODUCT USED FOR UNKNOWN INDICATION
     Dosage: UNK
     Route: 065
     Dates: start: 20200305
  2. PARACETAMOL [Concomitant]
     Active Substance: ACETAMINOPHEN
  3. METOCLOPRAMIDE. [Concomitant]
     Active Substance: METOCLOPRAMIDE
  4. ALBUMIN [Concomitant]
     Active Substance: ALBUMIN HUMAN
  5. TIAMINA [THIAMINE] [Concomitant]
  6. RIFAXIMINE [Concomitant]
     Active Substance: RIFAXIMIN
  7. LACTULOSE. [Concomitant]
     Active Substance: LACTULOSE
  8. NOLOTIL [METAMIZOLE MAGNESIUM] [Concomitant]
     Active Substance: METAMIZOLE MAGNESIUM

REACTIONS (3)
  - Anaemia [Recovered/Resolved]
  - Infection [Recovering/Resolving]
  - Blood bilirubin increased [Not Recovered/Not Resolved]
